FAERS Safety Report 13684008 (Version 1)
Quarter: 2017Q2

REPORT INFORMATION
  Report Type: Report from Study
  Country: DE (occurrence: DE)
  Receive Date: 20170623
  Receipt Date: 20170623
  Transmission Date: 20170830
  Serious: Yes (Other)
  Sender: FDA-Public Use
  Company Number: DE-TEVA-778660GER

PATIENT
  Age: 46 Year
  Sex: Female

DRUGS (3)
  1. IBUPROFEN. [Suspect]
     Active Substance: IBUPROFEN
     Indication: OSTEOARTHRITIS
  2. IBUPROFEN. [Suspect]
     Active Substance: IBUPROFEN
  3. IBUPROFEN. [Suspect]
     Active Substance: IBUPROFEN
     Indication: BACK PAIN

REACTIONS (5)
  - Drug ineffective [Unknown]
  - Tension headache [Unknown]
  - Abdominal discomfort [Unknown]
  - Dependence [Unknown]
  - Nausea [Unknown]
